FAERS Safety Report 25502886 (Version 1)
Quarter: 2025Q3

REPORT INFORMATION
  Report Type: Spontaneous
  Country: US (occurrence: US)
  Receive Date: 20250702
  Receipt Date: 20250702
  Transmission Date: 20251020
  Serious: No
  Sender: GERON CORP
  Company Number: US-GERON CORPORATION-US-GER-25-000092

PATIENT
  Sex: Male

DRUGS (1)
  1. RYTELO [Suspect]
     Active Substance: IMETELSTAT SODIUM
     Indication: Myelodysplastic syndrome
     Dosage: 423 MILLIGRAM/KILOGRAM, 4W
     Route: 042
     Dates: start: 202409, end: 202503

REACTIONS (3)
  - Full blood count decreased [Not Recovered/Not Resolved]
  - Drug ineffective [Not Recovered/Not Resolved]
  - Platelet count decreased [Not Recovered/Not Resolved]
